FAERS Safety Report 6469142-3 (Version None)
Quarter: 2009Q4

REPORT INFORMATION
  Report Type: 
  Country: None (occurrence: None)
  Receive Date: 20091203
  Receipt Date: 20080611
  Transmission Date: 20100525
  Serious: Yes (Other)
  Sender: FDA-Public Use
  Company Number: US-ELI_LILLY_AND_COMPANY-US200709001997

PATIENT
  Age: 53 Year
  Sex: Female
  Weight: 81.633 kg

DRUGS (2)
  1. CYMBALTA [Suspect]
     Indication: FEELING ABNORMAL
     Dosage: UNK, UNK
     Dates: start: 20060101, end: 20071029
  2. UNIRETIC [Concomitant]
     Indication: HYPERTENSION

REACTIONS (2)
  - HEPATIC STEATOSIS [None]
  - HEPATOCELLULAR INJURY [None]
